FAERS Safety Report 5340559-3 (Version None)
Quarter: 2007Q2

REPORT INFORMATION
  Report Type: 
  Country: None (occurrence: None)
  Receive Date: 20070531
  Receipt Date: 20070521
  Transmission Date: 20071010
  Serious: Yes (Other)
  Sender: FDA-Public Use
  Company Number: US-PFIZER INC-2007037368

PATIENT
  Sex: Female
  Weight: 52.272 kg

DRUGS (8)
  1. CHANTIX [Suspect]
     Indication: SMOKING CESSATION THERAPY
     Dates: start: 20070401, end: 20070401
  2. LAXATIVES [Concomitant]
  3. NITROGLYCERIN [Concomitant]
  4. PERCOCET [Concomitant]
  5. PREVACID [Concomitant]
  6. LEVOXYL [Concomitant]
  7. TRAZODONE HCL [Concomitant]
  8. ALPRAZOLAM [Concomitant]

REACTIONS (11)
  - ADVERSE DRUG REACTION [None]
  - ANOREXIA [None]
  - CONSTIPATION [None]
  - DYSPHAGIA [None]
  - HAEMORRHOIDS [None]
  - OEDEMA MOUTH [None]
  - RETCHING [None]
  - SWELLING FACE [None]
  - VOMITING [None]
  - WEIGHT DECREASED [None]
  - WEIGHT INCREASED [None]
